FAERS Safety Report 11633097 (Version 1)
Quarter: 2015Q4

REPORT INFORMATION
  Report Type: Spontaneous
  Country: US (occurrence: US)
  Receive Date: 20151015
  Receipt Date: 20151015
  Transmission Date: 20160304
  Serious: Yes (Other)
  Sender: FDA-Public Use
  Company Number: US-PFIZER INC-2015342964

PATIENT
  Age: 36 Year
  Sex: Female
  Weight: 54 kg

DRUGS (6)
  1. KLONOPIN [Concomitant]
     Active Substance: CLONAZEPAM
     Indication: ANXIETY
     Dosage: 0.2 MG, DAILY
  2. TRAZODONE [Concomitant]
     Active Substance: TRAZODONE HYDROCHLORIDE
     Indication: SLEEP DISORDER
     Dosage: 300 MG, AS NEEDED
  3. LYRICA [Suspect]
     Active Substance: PREGABALIN
     Indication: NEURALGIA
  4. KLONOPIN [Concomitant]
     Active Substance: CLONAZEPAM
     Dosage: 2 MG, DAILY
  5. LYRICA [Suspect]
     Active Substance: PREGABALIN
     Indication: DEPRESSION
     Dosage: 100 MG, 2X/DAY
  6. TRAMADOL. [Concomitant]
     Active Substance: TRAMADOL
     Indication: DEPRESSION
     Dosage: 100 MG, 1X/DAY

REACTIONS (5)
  - Cystitis interstitial [Not Recovered/Not Resolved]
  - Pain [Not Recovered/Not Resolved]
  - Nephrolithiasis [Unknown]
  - Product use issue [Unknown]
  - Condition aggravated [Unknown]

NARRATIVE: CASE EVENT DATE: 20150830
